FAERS Safety Report 6292397-5 (Version None)
Quarter: 2009Q3

REPORT INFORMATION
  Report Type: 
  Country: None (occurrence: None)
  Receive Date: 20090731
  Receipt Date: 20090721
  Transmission Date: 20100115
  Serious: Yes (Hospitalization)
  Sender: FDA-Public Use
  Company Number: PHHY2009DE31430

PATIENT
  Age: 68 Year
  Sex: Female

DRUGS (9)
  1. LOTENSIN HCT [Suspect]
     Indication: HYPERTENSION
     Dosage: 1 DF, QD
     Route: 048
     Dates: start: 20050101, end: 20090605
  2. CITALOPRAM HYDROBROMIDE [Interacting]
     Indication: DEPRESSION
     Dosage: 10 MG, QD
     Route: 048
     Dates: start: 20090605
  3. CITALOPRAM HYDROBROMIDE [Interacting]
     Dosage: 20 MG, QD
     Route: 048
     Dates: start: 20090617, end: 20090620
  4. BISOPROLOL [Concomitant]
     Dosage: 5 MG, QD
     Dates: start: 20000101
  5. AMLODIPINE [Concomitant]
     Indication: HYPERTENSION
     Dosage: 5 MG, QD
  6. ZYLORIC [Concomitant]
     Indication: HYPERURICAEMIA
     Dosage: 150 MG, QD
     Dates: start: 20080101
  7. MELNEURIN [Concomitant]
     Indication: DEPRESSION
     Dosage: 12.5 MG, QD
     Dates: start: 20090101
  8. ZOLPIDEM [Concomitant]
     Indication: SLEEP DISORDER
     Dosage: 10 MG
     Dates: start: 20080101
  9. PANTOZOL [Concomitant]
     Indication: GASTRITIS
     Dosage: 40 MG, QD
     Dates: start: 20090401

REACTIONS (10)
  - ALANINE AMINOTRANSFERASE INCREASED [None]
  - ASPARTATE AMINOTRANSFERASE INCREASED [None]
  - BLOOD POTASSIUM DECREASED [None]
  - CONFUSIONAL STATE [None]
  - DELIRIUM [None]
  - DRUG INTERACTION [None]
  - GAMMA-GLUTAMYLTRANSFERASE INCREASED [None]
  - HYPONATRAEMIA [None]
  - MENTAL RETARDATION [None]
  - RESTLESSNESS [None]
